FAERS Safety Report 20112781 (Version 3)
Quarter: 2022Q1

REPORT INFORMATION
  Report Type: Spontaneous
  Country: JP (occurrence: None)
  Receive Date: 20211125
  Receipt Date: 20220222
  Transmission Date: 20220423
  Serious: Yes (Other)
  Sender: FDA-Public Use
  Company Number: 2021A816854

PATIENT
  Age: 62 Year
  Sex: Male

DRUGS (2)
  1. DAPAGLIFLOZIN [Suspect]
     Active Substance: DAPAGLIFLOZIN
     Indication: Type 2 diabetes mellitus
     Dosage: NUMBER OF SEPARATE DOSAGES UNKNOWN5.0MG UNKNOWN
     Route: 048
     Dates: start: 20210902, end: 20211007
  2. LINAGLIPTIN [Concomitant]
     Active Substance: LINAGLIPTIN
     Indication: Type 2 diabetes mellitus
     Dosage: NUMBER OF SEPARATE DOSAGES UNKNOWN5.0MG UNKNOWN
     Route: 048
     Dates: start: 20210902, end: 20211007

REACTIONS (1)
  - Euglycaemic diabetic ketoacidosis [Recovering/Resolving]

NARRATIVE: CASE EVENT DATE: 20211007
